FAERS Safety Report 7040132-5 (Version None)
Quarter: 2010Q4

REPORT INFORMATION
  Report Type: 
  Country: None (occurrence: None)
  Receive Date: 20101012
  Receipt Date: 20101002
  Transmission Date: 20110411
  Serious: Yes (Other)
  Sender: FDA-Public Use
  Company Number: PHHY2010US66247

PATIENT

DRUGS (1)
  1. METHERGINE [Suspect]
     Route: 030

REACTIONS (5)
  - CYANOSIS [None]
  - DYSKINESIA [None]
  - ENDOTRACHEAL INTUBATION [None]
  - RESPIRATORY DISTRESS [None]
  - WRONG DRUG ADMINISTERED [None]
